FAERS Safety Report 5454089-1 (Version None)
Quarter: 2007Q3

REPORT INFORMATION
  Report Type: 
  Country: None (occurrence: None)
  Receive Date: 20070917
  Receipt Date: 20060605
  Transmission Date: 20080115
  Serious: No
  Sender: FDA-Public Use
  Company Number: US-ASTRAZENECA-2006UW10958

PATIENT
  Age: 79 Year
  Sex: Male

DRUGS (1)
  1. SEROQUEL [Suspect]
     Dosage: 3 TABLETS AT BEDTIME
     Route: 048

REACTIONS (2)
  - MEMORY IMPAIRMENT [None]
  - SOMNAMBULISM [None]
